FAERS Safety Report 5923073-3 (Version None)
Quarter: 2008Q4

REPORT INFORMATION
  Report Type: 
  Country: None (occurrence: None)
  Receive Date: 20081018
  Receipt Date: 20081007
  Transmission Date: 20090506
  Serious: Yes (Other)
  Sender: FDA-Public Use
  Company Number: JP-PFIZER INC-2008084963

PATIENT
  Age: 43 Year
  Sex: Female

DRUGS (4)
  1. ZOLOFT [Suspect]
     Dosage: DAILY DOSE:75MG-FREQ:DAILY
     Route: 048
     Dates: start: 20070901
  2. MAPROTILINE HYDROCHLORIDE [Concomitant]
  3. MULTI-VITAMINS [Concomitant]
  4. ALL OTHER THERAPEUTIC PRODUCTS [Concomitant]

REACTIONS (4)
  - BLOOD CHOLESTEROL INCREASED [None]
  - LOW DENSITY LIPOPROTEIN INCREASED [None]
  - THIRST [None]
  - WEIGHT INCREASED [None]
